FAERS Safety Report 6349436-2 (Version None)
Quarter: 2009Q3

REPORT INFORMATION
  Report Type: 
  Country: None (occurrence: None)
  Receive Date: 20090911
  Receipt Date: 20090904
  Transmission Date: 20100115
  Serious: Yes (Other)
  Sender: FDA-Public Use
  Company Number: US-WYE-H10904109

PATIENT
  Sex: Female
  Weight: 54.03 kg

DRUGS (5)
  1. TYGACIL [Suspect]
     Indication: LYME DISEASE
     Route: 042
     Dates: start: 20090701, end: 20090101
  2. TYGACIL [Suspect]
     Route: 042
     Dates: start: 20090902, end: 20090903
  3. XANAX [Concomitant]
     Indication: ANXIETY
     Dosage: 1-2 AS NEEDED PER WEEK
     Route: 048
  4. COPAXONE [Concomitant]
     Dosage: UNKNOWN
  5. PAXIL [Concomitant]
     Indication: DEPRESSION

REACTIONS (10)
  - CHILLS [None]
  - DIZZINESS [None]
  - FEELING COLD [None]
  - FEELING HOT [None]
  - FLUSHING [None]
  - HYPOAESTHESIA [None]
  - NAUSEA [None]
  - PARALYSIS [None]
  - PRODUCT QUALITY ISSUE [None]
  - TREMOR [None]
